FAERS Safety Report 5511724-7 (Version None)
Quarter: 2007Q4

REPORT INFORMATION
  Report Type: 
  Country: None (occurrence: None)
  Receive Date: 20071109
  Receipt Date: 20071031
  Transmission Date: 20080405
  Serious: Yes (Other)
  Sender: FDA-Public Use
  Company Number: CA-PFIZER INC-2007072323

PATIENT
  Sex: Female
  Weight: 77.6 kg

DRUGS (5)
  1. CADUET [Suspect]
     Indication: HYPERTENSION
     Dosage: TEXT:10MG/10MG
     Route: 048
     Dates: start: 20070810, end: 20070813
  2. CADUET [Suspect]
     Indication: HYPERLIPIDAEMIA
  3. DIDROCAL [Concomitant]
     Route: 048
  4. LIPITOR [Concomitant]
     Dosage: DAILY DOSE:10MG
     Route: 048
  5. NORVASC [Concomitant]
     Dosage: DAILY DOSE:10MG
     Route: 048

REACTIONS (6)
  - DYSPHONIA [None]
  - HEADACHE [None]
  - PARAESTHESIA [None]
  - PRURITUS [None]
  - SWOLLEN TONGUE [None]
  - THROAT TIGHTNESS [None]
